FAERS Safety Report 6821732-1 (Version None)
Quarter: 2010Q3

REPORT INFORMATION
  Report Type: 
  Country: None (occurrence: None)
  Receive Date: 20100702
  Receipt Date: 20100623
  Transmission Date: 20110219
  Serious: Yes (Hospitalization)
  Sender: FDA-Public Use
  Company Number: 7004735

PATIENT
  Age: 31 Year
  Sex: Female

DRUGS (1)
  1. REBIF [Suspect]
     Indication: MULTIPLE SCLEROSIS
     Dosage: 44 MCG;
     Dates: start: 20090210, end: 20091019

REACTIONS (5)
  - DRUG EXPOSURE DURING PREGNANCY [None]
  - LEUKOPENIA [None]
  - MULTIPLE SCLEROSIS RELAPSE [None]
  - PREGNANCY [None]
  - THROMBOCYTOPENIA [None]
